FAERS Safety Report 4956746-X (Version None)
Quarter: 2006Q1

REPORT INFORMATION
  Report Type: 
  Country: None (occurrence: None)
  Receive Date: 20060329
  Receipt Date: 20060322
  Transmission Date: 20060701
  Serious: Yes (Other)
  Sender: FDA-Public Use
  Company Number: US-ROCHE-441731

PATIENT
  Age: 42 Year
  Sex: Female
  Weight: 148.8 kg

DRUGS (8)
  1. XENICAL [Suspect]
     Route: 048
     Dates: start: 20040615
  2. LANTUS [Concomitant]
  3. NORVASC [Concomitant]
  4. CLONIDINE [Concomitant]
  5. HYDROCHLOROTHIAZIDE [Concomitant]
  6. PREVACID [Concomitant]
  7. LEXAPRO [Concomitant]
  8. NORTRIPTYLINE HCL [Concomitant]

REACTIONS (1)
  - HEPATIC CIRRHOSIS [None]
